FAERS Safety Report 17693555 (Version 1)
Quarter: 2020Q2

REPORT INFORMATION
  Report Type: Spontaneous
  Country: US (occurrence: US)
  Receive Date: 20200422
  Receipt Date: 20200422
  Transmission Date: 20200714
  Serious: No
  Sender: FDA-Public Use
  Company Number: US-PFIZER INC-2020157456

PATIENT
  Age: 34 Year
  Sex: Male
  Weight: 102.51 kg

DRUGS (3)
  1. VIAGRA [Suspect]
     Active Substance: SILDENAFIL CITRATE
     Indication: ERECTILE DYSFUNCTION
     Dosage: 100 MG, AS NEEDED
     Route: 048
  2. VIAGRA [Suspect]
     Active Substance: SILDENAFIL CITRATE
     Indication: BLADDER DISORDER
  3. VIAGRA [Suspect]
     Active Substance: SILDENAFIL CITRATE
     Indication: MUSCLE DISCOMFORT

REACTIONS (4)
  - Product use in unapproved indication [Unknown]
  - Headache [Unknown]
  - Therapeutic response unexpected [Unknown]
  - Off label use [Unknown]
